FAERS Safety Report 5765724-2 (Version None)
Quarter: 2008Q2

REPORT INFORMATION
  Report Type: 
  Country: None (occurrence: None)
  Receive Date: 20080611
  Receipt Date: 20080602
  Transmission Date: 20081010
  Serious: Yes (Other)
  Sender: FDA-Public Use
  Company Number: PHHY2008BR10088

PATIENT
  Age: 44 Year
  Sex: Female
  Weight: 84 kg

DRUGS (2)
  1. CATAFLAM [Suspect]
     Indication: SWELLING
     Dosage: 50 MG, Q8H
     Route: 048
  2. KETOPROFEN [Concomitant]

REACTIONS (7)
  - FURUNCLE [None]
  - HEADACHE [None]
  - INFECTION [None]
  - PYREXIA [None]
  - SECRETION DISCHARGE [None]
  - SKIN FISSURES [None]
  - SWELLING [None]
